FAERS Safety Report 9426499 (Version 1)
Quarter: 2013Q3

REPORT INFORMATION
  Report Type: Spontaneous
  Country: US (occurrence: US)
  Receive Date: 20130730
  Receipt Date: 20130730
  Transmission Date: 20140515
  Serious: No
  Sender: FDA-Public Use
  Company Number: US-JNJFOC-20130710049

PATIENT
  Sex: Female

DRUGS (3)
  1. DURAGESIC [Suspect]
     Indication: PAIN
     Route: 062
     Dates: start: 2007
  2. DURAGESIC [Suspect]
     Indication: PAIN
     Route: 062
     Dates: start: 2007
  3. ROXICODONE [Concomitant]
     Indication: PAIN
     Route: 048

REACTIONS (3)
  - Drug dose omission [Recovered/Resolved]
  - Poor quality drug administered [Recovered/Resolved]
  - Product quality issue [Unknown]
